FAERS Safety Report 23717627 (Version 3)
Quarter: 2024Q3

REPORT INFORMATION
  Report Type: Spontaneous
  Country: US (occurrence: US)
  Receive Date: 20240408
  Receipt Date: 20240716
  Transmission Date: 20241017
  Serious: Yes (Other)
  Sender: GLAXOSMITHKLINE
  Company Number: US-GLAXOSMITHKLINE-US2024AMR042928

PATIENT

DRUGS (1)
  1. TRELEGY ELLIPTA [Suspect]
     Active Substance: FLUTICASONE FUROATE\UMECLIDINIUM BROMIDE\VILANTEROL TRIFENATATE
     Indication: Product used for unknown indication
     Dosage: UNK

REACTIONS (9)
  - Blindness [Unknown]
  - Haemangioma [Unknown]
  - Oral disorder [Unknown]
  - Weight decreased [Unknown]
  - Wheezing [Unknown]
  - Abdominal pain [Unknown]
  - Constipation [Unknown]
  - Increased tendency to bruise [Unknown]
  - Myalgia [Unknown]
